FAERS Safety Report 19004351 (Version 4)
Quarter: 2022Q3

REPORT INFORMATION
  Report Type: Other
  Country: AR (occurrence: AR)
  Receive Date: 20210312
  Receipt Date: 20220708
  Transmission Date: 20221026
  Serious: Yes (Hospitalization, Other)
  Sender: FDA-Public Use
  Company Number: AR-002147023-PHHY2014AR086337

PATIENT
  Age: 10 Year
  Sex: Female

DRUGS (6)
  1. XOLAIR [Suspect]
     Active Substance: OMALIZUMAB
     Indication: Asthma
     Dosage: 150 MG, QMO (1 AMPOULE OF 150 MG MONTHLY)
     Route: 058
     Dates: start: 20130101, end: 20130113
  2. XOLAIR [Suspect]
     Active Substance: OMALIZUMAB
     Dosage: 1 DF, QMO
     Route: 058
     Dates: start: 201401
  3. XOLAIR [Suspect]
     Active Substance: OMALIZUMAB
     Dosage: 1 DF, QMO
     Route: 058
     Dates: start: 20150306
  4. SALMETEROL [Concomitant]
     Active Substance: SALMETEROL
     Indication: Product used for unknown indication
     Route: 065
  5. FLUTICASONE [Concomitant]
     Active Substance: FLUTICASONE
     Indication: Product used for unknown indication
     Route: 065
  6. MONTELUKAST [Concomitant]
     Active Substance: MONTELUKAST SODIUM
     Indication: Product used for unknown indication
     Dosage: 5 MG, QD
     Route: 065

REACTIONS (22)
  - Pneumonia [Recovered/Resolved]
  - Asthmatic crisis [Recovered/Resolved]
  - Asthmatic crisis [Recovered/Resolved]
  - Bronchospasm [Recovered/Resolved]
  - Hypoxia [Unknown]
  - Chest pain [Recovered/Resolved]
  - Viral infection [Recovering/Resolving]
  - Nasopharyngitis [Recovering/Resolving]
  - Respiratory tract congestion [Recovering/Resolving]
  - Throat tightness [Unknown]
  - Allergy to chemicals [Unknown]
  - Blood immunoglobulin E increased [Unknown]
  - Eye swelling [Unknown]
  - Hypersensitivity [Unknown]
  - Hypersensitivity [Recovering/Resolving]
  - Sneezing [Unknown]
  - Bronchial secretion retention [Unknown]
  - Rhinorrhoea [Unknown]
  - Hypersensitivity [Recovered/Resolved]
  - Asthma [Unknown]
  - Oxygen saturation decreased [Recovered/Resolved]
  - Inappropriate schedule of product administration [Unknown]

NARRATIVE: CASE EVENT DATE: 20140601
